FAERS Safety Report 19149154 (Version 1)
Quarter: 2021Q2

REPORT INFORMATION
  Report Type: Spontaneous
  Country: FR (occurrence: FR)
  Receive Date: 20210417
  Receipt Date: 20210417
  Transmission Date: 20210717
  Serious: Yes (Other)
  Sender: FDA-Public Use
  Company Number: FR-LUPIN PHARMACEUTICALS INC.-2021-04825

PATIENT
  Sex: Female

DRUGS (14)
  1. FLUDARABINE [Concomitant]
     Active Substance: FLUDARABINE PHOSPHATE
     Indication: BONE MARROW CONDITIONING REGIMEN
     Dosage: 160 MILLIGRAM/SQ. METER
     Route: 065
  2. INDOMETHACIN [INDOMETACIN] [Concomitant]
     Active Substance: INDOMETHACIN
     Indication: STILL^S DISEASE
     Dosage: 25 MILLIGRAM, QD
     Route: 065
  3. PREDNISOLONE. [Suspect]
     Active Substance: PREDNISOLONE
     Dosage: 1 MILLIGRAM/KILOGRAM, QD
     Route: 065
  4. METHOTREXATE. [Concomitant]
     Active Substance: METHOTREXATE
     Indication: STILL^S DISEASE
     Dosage: 5 MILLIGRAM, WEEKLY
     Route: 065
  5. MYCOPHENOLATE MOFETIL. [Concomitant]
     Active Substance: MYCOPHENOLATE MOFETIL
     Indication: PROPHYLAXIS AGAINST GRAFT VERSUS HOST DISEASE
     Dosage: UNK
     Route: 065
  6. THALIDOMIDE [Concomitant]
     Active Substance: THALIDOMIDE
     Indication: STILL^S DISEASE
     Dosage: 50 MILLIGRAM, QD
     Route: 065
  7. RITUXIMAB. [Concomitant]
     Active Substance: RITUXIMAB
     Indication: BONE MARROW CONDITIONING REGIMEN
     Dosage: 375 MILLIGRAM/SQ. METER
     Route: 065
  8. BUSULFAN. [Concomitant]
     Active Substance: BUSULFAN
     Indication: BONE MARROW CONDITIONING REGIMEN
     Dosage: WITH AN AUC OF 25,638 MICROM/MIN
     Route: 065
  9. CYCLOSPORIN [Concomitant]
     Active Substance: CYCLOSPORINE
     Indication: PROPHYLAXIS AGAINST GRAFT VERSUS HOST DISEASE
     Dosage: UNK
     Route: 065
  10. METHYLPREDNISOLONE. [Suspect]
     Active Substance: METHYLPREDNISOLONE
     Indication: STILL^S DISEASE
     Dosage: UNK (PULSE THERAPY)
     Route: 065
  11. PREDNISOLONE. [Suspect]
     Active Substance: PREDNISOLONE
     Indication: STILL^S DISEASE
     Dosage: 2 MILLIGRAM/KILOGRAM, QD
     Route: 065
  12. CYCLOPHOSPHAMIDE. [Concomitant]
     Active Substance: CYCLOPHOSPHAMIDE
     Indication: PROPHYLAXIS AGAINST GRAFT VERSUS HOST DISEASE
     Dosage: 50 MILLIGRAM/KILOGRAM
     Route: 065
  13. ALEMTUZUMAB [Concomitant]
     Active Substance: ALEMTUZUMAB
     Indication: BONE MARROW CONDITIONING REGIMEN
     Dosage: 0.5 MILLIGRAM/KILOGRAM
     Route: 065
  14. INFLIXIMAB [Concomitant]
     Active Substance: INFLIXIMAB
     Indication: STILL^S DISEASE
     Dosage: 75 MILLIGRAM, PER 4  WEEKS
     Route: 065

REACTIONS (12)
  - Hypertension [Unknown]
  - Actinomycosis [Recovered/Resolved]
  - Varicella zoster virus infection [Unknown]
  - Cellulitis staphylococcal [Recovered/Resolved]
  - Adrenal insufficiency [Recovered/Resolved]
  - Growth retardation [Unknown]
  - Arthropathy [Unknown]
  - Clostridium difficile colitis [Recovered/Resolved]
  - Superinfection bacterial [Recovered/Resolved]
  - Osteopenia [Unknown]
  - Infection reactivation [Unknown]
  - Herpes zoster [Unknown]
